FAERS Safety Report 25024830 (Version 1)
Quarter: 2025Q1

REPORT INFORMATION
  Report Type: Spontaneous
  Country: US (occurrence: None)
  Receive Date: 20250228
  Receipt Date: 20250228
  Transmission Date: 20250409
  Serious: No
  Sender: INCYTE
  Company Number: US-INCYTE CORPORATION-2025IN001873

PATIENT
  Age: 68 Year

DRUGS (1)
  1. JAKAFI [Suspect]
     Active Substance: RUXOLITINIB
     Indication: Bone marrow transplant
     Dosage: 5 MILLIGRAM, BID

REACTIONS (5)
  - Fatigue [Unknown]
  - Asthenia [Unknown]
  - Decreased activity [Unknown]
  - Oedema [Unknown]
  - Off label use [Unknown]
